FAERS Safety Report 18761311 (Version 1)
Quarter: 2021Q1

REPORT INFORMATION
  Report Type: Spontaneous
  Country: CA (occurrence: CA)
  Receive Date: 20210120
  Receipt Date: 20210120
  Transmission Date: 20210419
  Serious: Yes (Hospitalization)
  Sender: FDA-Public Use
  Company Number: CA-ACCORD-214594

PATIENT
  Age: 70 Year
  Sex: Female
  Weight: 43 kg

DRUGS (20)
  1. IRINOTECAN [Suspect]
     Active Substance: IRINOTECAN
     Indication: COLON CANCER METASTATIC
     Dosage: SOLUTION INTRAVENOUS
  2. ATROPINE. [Concomitant]
     Active Substance: ATROPINE
  3. ASA [Concomitant]
     Active Substance: ASPIRIN
  4. DEXAMETHASONE. [Concomitant]
     Active Substance: DEXAMETHASONE
     Dosage: LIQUID INTRA? ARTICULAR
  5. FLOVENT [Concomitant]
     Active Substance: FLUTICASONE PROPIONATE
  6. LORAZEPAM. [Concomitant]
     Active Substance: LORAZEPAM
  7. LOPERAMIDE [Concomitant]
     Active Substance: LOPERAMIDE
  8. METOCLOPRAMIDE. [Concomitant]
     Active Substance: METOCLOPRAMIDE
  9. PANTOPRAZOLE [Concomitant]
     Active Substance: PANTOPRAZOLE
  10. RISEDRONIC ACID [Concomitant]
     Active Substance: RISEDRONIC ACID
  11. FOLIC ACID. [Suspect]
     Active Substance: FOLIC ACID
     Indication: COLON CANCER METASTATIC
  12. CALCIUM CARBONATE/CALCIUM LACTOGLUCONATE [Concomitant]
     Active Substance: CALCIUM CARBONATE\CALCIUM LACTATE GLUCONATE
  13. OLANZAPINE. [Concomitant]
     Active Substance: OLANZAPINE
  14. PREDNISONE. [Concomitant]
     Active Substance: PREDNISONE
  15. IRON [Concomitant]
     Active Substance: IRON
  16. ONDANSETRON [Concomitant]
     Active Substance: ONDANSETRON
  17. VENTOLIN [Concomitant]
     Active Substance: ALBUTEROL SULFATE
  18. FLUOROURACIL. [Suspect]
     Active Substance: FLUOROURACIL
     Indication: COLON CANCER METASTATIC
     Route: 065
  19. BEVACIZUMAB. [Suspect]
     Active Substance: BEVACIZUMAB
     Indication: COLON CANCER METASTATIC
     Route: 042
  20. GRASTOFIL [Concomitant]
     Active Substance: FILGRASTIM
     Dosage: SINGLE USE PRE?FILLED SYRINGE, SOLUTION INTRAVENOUS

REACTIONS (1)
  - Febrile neutropenia [Recovered/Resolved]
